FAERS Safety Report 21559697 (Version 1)
Quarter: 2022Q4

REPORT INFORMATION
  Report Type: Spontaneous
  Country: US (occurrence: US)
  Receive Date: 20221107
  Receipt Date: 20221107
  Transmission Date: 20230113
  Serious: Yes (Other)
  Sender: FDA-Public Use
  Company Number: US-BAYER-2022A150758

PATIENT
  Age: 72 Year
  Sex: Female

DRUGS (4)
  1. AFRIN ORIGINAL NASAL [Suspect]
     Active Substance: OXYMETAZOLINE HYDROCHLORIDE
     Indication: Head discomfort
     Dosage: TWO TO THREE TIMES A DAY
     Dates: start: 1975
  2. AFRIN ORIGINAL NASAL [Suspect]
     Active Substance: OXYMETAZOLINE HYDROCHLORIDE
     Indication: Sinonasal obstruction
  3. CLARITIN-D NOS [Suspect]
     Active Substance: LORATADINE\PSEUDOEPHEDRINE SULFATE
     Indication: Sinonasal obstruction
     Dosage: 1 TO 2 TABLETS A DAY
     Route: 048
     Dates: start: 202107
  4. CLARITIN-D NOS [Suspect]
     Active Substance: LORATADINE\PSEUDOEPHEDRINE SULFATE
     Indication: Head discomfort

REACTIONS (3)
  - Drug dependence [Unknown]
  - Inappropriate schedule of product administration [Unknown]
  - Incorrect product administration duration [None]

NARRATIVE: CASE EVENT DATE: 19750101
